FAERS Safety Report 6346431-4 (Version None)
Quarter: 2009Q3

REPORT INFORMATION
  Report Type: 
  Country: None (occurrence: None)
  Receive Date: 20090909
  Receipt Date: 20090831
  Transmission Date: 20100115
  Serious: Yes (Hospitalization, Other)
  Sender: FDA-Public Use
  Company Number: US-WYE-H08872909

PATIENT
  Age: 68 Year
  Sex: Male

DRUGS (3)
  1. TEMSIROLIMUS [Suspect]
     Indication: MANTLE CELL LYMPHOMA
     Dosage: 25 MG IV DAYS 1,8,15,22
     Route: 042
     Dates: start: 20080616, end: 20090209
  2. COUMADIN [Concomitant]
  3. RITUXIMAB [Suspect]
     Indication: MANTLE CELL LYMPHOMA
     Dosage: 375 MG/M^2 ON DAY 1 OF CYCLES 3,5,7,9,AND 11 ONLY
     Route: 042
     Dates: start: 20080616, end: 20090126

REACTIONS (4)
  - ATRIAL FIBRILLATION [None]
  - ATRIAL THROMBOSIS [None]
  - LEFT VENTRICULAR DYSFUNCTION [None]
  - VENTRICULAR TACHYCARDIA [None]
